FAERS Safety Report 19770536 (Version 1)
Quarter: 2021Q3

REPORT INFORMATION
  Report Type: Spontaneous
  Country: US (occurrence: US)
  Receive Date: 20210831
  Receipt Date: 20210831
  Transmission Date: 20211014
  Serious: Yes (Disabling)
  Sender: FDA-Public Use
  Company Number: None

PATIENT
  Age: 73 Year
  Sex: Male
  Weight: 112.5 kg

DRUGS (18)
  1. MICONAZOLE POWDER [Concomitant]
     Active Substance: MICONAZOLE
  2. LOSARTAN. [Concomitant]
     Active Substance: LOSARTAN
  3. CHOLESTOFF [Concomitant]
  4. GENERIC NEXIUM [Concomitant]
     Active Substance: ESOMEPRAZOLE MAGNESIUM
  5. XIIDRA [Suspect]
     Active Substance: LIFITEGRAST
     Indication: DRY EYE
     Route: 047
     Dates: start: 20210803, end: 20210816
  6. NIACIN. [Concomitant]
     Active Substance: NIACIN
  7. CALCIUM [Concomitant]
     Active Substance: CALCIUM
  8. FISH OIL [Concomitant]
     Active Substance: FISH OIL
  9. LATANOPROST OPHTHALMIC [Concomitant]
  10. FLAXSEED [Concomitant]
     Active Substance: FLAX SEED
  11. FLONASE GENERIC [Concomitant]
  12. PEPCID [Concomitant]
     Active Substance: FAMOTIDINE
  13. OMEPROZOLE [Concomitant]
     Active Substance: OMEPRAZOLE
  14. TURMERIC [Concomitant]
     Active Substance: HERBALS\TURMERIC
  15. DIPHENHYDRAMINE. [Concomitant]
     Active Substance: DIPHENHYDRAMINE
  16. METFORMIN [Concomitant]
     Active Substance: METFORMIN HYDROCHLORIDE
  17. COENZYME Q10 [Concomitant]
     Active Substance: DIETARY SUPPLEMENT\UBIDECARENONE
  18. MULTIVITAMIN [Concomitant]
     Active Substance: VITAMINS

REACTIONS (7)
  - Glossodynia [None]
  - Chapped lips [None]
  - Oral pain [None]
  - Taste disorder [None]
  - Gingival pain [None]
  - Tongue ulceration [None]
  - Eye irritation [None]

NARRATIVE: CASE EVENT DATE: 20210816
